FAERS Safety Report 7780995-9 (Version None)
Quarter: 2011Q3

REPORT INFORMATION
  Report Type: 
  Country: None (occurrence: None)
  Receive Date: 20110927
  Receipt Date: 20110919
  Transmission Date: 20111222
  Serious: Yes (Other)
  Sender: FDA-Public Use
  Company Number: PHFR2011IE02341

PATIENT
  Sex: Female

DRUGS (7)
  1. LEVEMIR [Concomitant]
     Dosage: 50 MMOL, DAILY
     Route: 058
  2. RISPERIDONE [Concomitant]
     Dosage: 6 DF, DAILY
     Route: 048
     Dates: start: 20101001
  3. CLOZAPINE [Suspect]
     Indication: SCHIZOPHRENIA
     Route: 048
     Dates: start: 20110401, end: 20110404
  4. GLUCOPHAGE [Concomitant]
     Dosage: 1000 DF, DAILY
     Route: 048
  5. AKINETON [Concomitant]
     Dosage: 4 DF, DAILY
     Route: 048
     Dates: start: 20101001
  6. VENLAFAXINE HYDROCHLORIDE [Concomitant]
     Dosage: 225 DF, DAILY
     Route: 048
     Dates: start: 20101001
  7. FLURAZEPAM [Concomitant]
     Dosage: 30 DF, DAILY
     Route: 048
     Dates: start: 20101001

REACTIONS (4)
  - HYPERSENSITIVITY [None]
  - RASH ERYTHEMATOUS [None]
  - TACHYCARDIA [None]
  - RED BLOOD CELL SEDIMENTATION RATE INCREASED [None]
